FAERS Safety Report 6847462-8 (Version None)
Quarter: 2010Q3

REPORT INFORMATION
  Report Type: 
  Country: None (occurrence: None)
  Receive Date: 20100716
  Receipt Date: 20100707
  Transmission Date: 20110219
  Serious: Yes (Other)
  Sender: FDA-Public Use
  Company Number: US-JNJFOC-20100407114

PATIENT
  Sex: Female
  Weight: 68.04 kg

DRUGS (21)
  1. FENTANYL-100 [Suspect]
     Indication: FIBROMYALGIA
     Route: 062
  2. FENTANYL-100 [Suspect]
     Dosage: NDC 0781-7112-55
     Route: 062
  3. FENTANYL-100 [Suspect]
     Indication: BACK PAIN
     Route: 062
  4. FENTANYL-100 [Suspect]
     Dosage: NDC 0781-7112-55
     Route: 062
  5. DURAGESIC-100 [Suspect]
     Indication: FIBROMYALGIA
     Route: 062
  6. SYNTHROID [Concomitant]
     Indication: HYPOTHYROIDISM
     Route: 048
  7. SYNTHROID [Concomitant]
     Route: 048
  8. METOPROLOL [Concomitant]
     Indication: CARDIAC MURMUR
     Route: 048
  9. EFFEXOR [Concomitant]
     Indication: DEPRESSION
     Route: 048
  10. SIMVASTATIN [Concomitant]
     Indication: BLOOD CHOLESTEROL INCREASED
     Dosage: AT BED TIME
     Route: 048
  11. SIMVASTATIN [Concomitant]
     Route: 048
  12. BISACODYL [Concomitant]
     Dosage: 2 TABLETS AS NEEDED
     Route: 065
  13. CLONAZEPAM [Concomitant]
     Dosage: IN THE EVENING
     Route: 065
  14. ESTRADIOL [Concomitant]
     Route: 065
  15. FLUTICASONE [Concomitant]
     Route: 045
  16. TOPROL-XL [Concomitant]
     Dosage: HALF TABLET
     Route: 065
  17. EFFEXOR XR [Concomitant]
     Indication: ANXIETY
     Dosage: IN THE MORNING
     Route: 065
  18. EFFEXOR XR [Concomitant]
     Indication: AFFECTIVE DISORDER
     Dosage: IN THE MORNING
     Route: 065
  19. NITROGLYCERIN [Concomitant]
     Route: 060
  20. THYROID SUPPLEMENTS [Concomitant]
     Indication: HORMONE REPLACEMENT THERAPY
     Route: 065
  21. VICODIN [Concomitant]
     Route: 065

REACTIONS (4)
  - BACK PAIN [None]
  - INTERVERTEBRAL DISC DISORDER [None]
  - INTERVERTEBRAL DISC PROTRUSION [None]
  - PAIN IN EXTREMITY [None]
